FAERS Safety Report 23864117 (Version 1)
Quarter: 2024Q2

REPORT INFORMATION
  Report Type: Report from Study
  Country: US (occurrence: None)
  Receive Date: 20240516
  Receipt Date: 20240516
  Transmission Date: 20240716
  Serious: Yes (Death, Hospitalization)
  Sender: FDA-Public Use
  Company Number: 2024A113108

PATIENT
  Age: 78 Year
  Sex: Male

DRUGS (5)
  1. ANDEXANET ALFA [Suspect]
     Active Substance: ANDEXANET ALFA
     Indication: Procoagulant therapy
     Dosage: LOW DOSE
     Route: 040
  2. APIXABAN [Concomitant]
     Active Substance: APIXABAN
     Indication: Atrial fibrillation
  3. 4F-PCC [Concomitant]
     Dosage: 50 UNITS/KG
  4. 4F-PCC [Concomitant]
     Dosage: 25 UNITS/KG
  5. 4F-PCC [Concomitant]
     Dosage: 72 UNITS/KG WITHIN THE DAY

REACTIONS (3)
  - Renal artery thrombosis [Fatal]
  - Acute kidney injury [Fatal]
  - Cerebral haemorrhage [Fatal]
